FAERS Safety Report 8283782 (Version 2)
Quarter: 2014Q4

REPORT INFORMATION
  Report Type: Spontaneous
  Country: US (occurrence: US)
  Receive Date: 20111212
  Receipt Date: 20141009
  Transmission Date: 20150529
  Serious: Yes (Other)
  Sender: FDA-Public Use
  Company Number: US-US-EMD SERONO, INC.-7099190

PATIENT
  Sex: Female

DRUGS (2)
  1. REBIF [Suspect]
     Active Substance: INTERFERON BETA-1A
     Indication: PRODUCT USED FOR UNKNOWN INDICATION
     Route: 058
     Dates: start: 20110317
  2. NAPROXEN. [Concomitant]
     Active Substance: NAPROXEN

REACTIONS (7)
  - Injection site bruising [Not Recovered/Not Resolved]
  - Blood glucose decreased [Unknown]
  - Injection site pain [Not Recovered/Not Resolved]
  - Optic neuritis [Recovering/Resolving]
  - Central nervous system lesion [Unknown]
  - Injection site erythema [Not Recovered/Not Resolved]
  - Injection site pruritus [Not Recovered/Not Resolved]
